FAERS Safety Report 12079986 (Version 1)
Quarter: 2016Q1

REPORT INFORMATION
  Report Type: Spontaneous
  Country: US (occurrence: None)
  Receive Date: 20160212
  Receipt Date: 20160212
  Transmission Date: 20160526
  Serious: Yes (Other)
  Sender: FDA-Public Use
  Company Number: None

PATIENT
  Sex: Male
  Weight: 88.45 kg

DRUGS (5)
  1. PRAVASTATIN [Suspect]
     Active Substance: PRAVASTATIN\PRAVASTATIN SODIUM
  2. ATORVASTATIN [Concomitant]
     Active Substance: ATORVASTATIN
  3. ROSUVASTATIN [Suspect]
     Active Substance: ROSUVASTATIN
  4. SIMVASTATIN. [Concomitant]
     Active Substance: SIMVASTATIN
  5. MEVACOR [Suspect]
     Active Substance: LOVASTATIN
     Indication: HYPERCHOLESTEROLAEMIA
     Route: 048

REACTIONS (2)
  - Paraesthesia [None]
  - Hypoaesthesia [None]
